FAERS Safety Report 7240458-6 (Version None)
Quarter: 2011Q1

REPORT INFORMATION
  Report Type: 
  Country: None (occurrence: None)
  Receive Date: 20110124
  Receipt Date: 20110121
  Transmission Date: 20110831
  Serious: No
  Sender: FDA-Public Use
  Company Number: US-PFIZER INC-2010065471

PATIENT
  Sex: Female
  Weight: 70.295 kg

DRUGS (6)
  1. PREDNISONE [Concomitant]
     Indication: RHEUMATOID ARTHRITIS
  2. CHANTIX [Suspect]
     Dosage: UNK
     Route: 048
     Dates: start: 20101001, end: 20101101
  3. NEXIUM [Concomitant]
     Indication: GASTROOESOPHAGEAL REFLUX DISEASE
     Dosage: 40 MG, DAILY
     Route: 048
  4. NEXIUM [Concomitant]
     Indication: HERNIA
  5. PREDNISONE [Concomitant]
     Indication: SYSTEMIC LUPUS ERYTHEMATOSUS
     Dosage: 2 MG, 1X/DAY
     Route: 048
  6. CHANTIX [Suspect]
     Indication: SMOKING CESSATION THERAPY
     Dosage: 0.5 MG, DAILY
     Route: 048
     Dates: start: 20101001

REACTIONS (8)
  - NERVOUSNESS [None]
  - WRONG TECHNIQUE IN DRUG USAGE PROCESS [None]
  - ERUCTATION [None]
  - NIGHTMARE [None]
  - STRESS [None]
  - DRUG INTOLERANCE [None]
  - INSOMNIA [None]
  - WEIGHT INCREASED [None]
